FAERS Safety Report 8063993-X (Version None)
Quarter: 2011Q4

REPORT INFORMATION
  Report Type: 
  Country: None (occurrence: None)
  Receive Date: 20111221
  Receipt Date: 20110722
  Transmission Date: 20120403
  Serious: Yes (Hospitalization)
  Sender: FDA-Public Use
  Company Number: 2011S1000047

PATIENT
  Age: 70 Year
  Sex: Male

DRUGS (17)
  1. COLCRYS [Concomitant]
  2. CYCLOBENZAPRINE [Concomitant]
  3. CENTRUM /00554501/ [Concomitant]
  4. ASPIRIN [Concomitant]
  5. BENADRYL [Concomitant]
  6. TOPROL-XL [Concomitant]
  7. PREDNISONE [Concomitant]
  8. KRYSTEXXA [Suspect]
     Indication: GOUT
     Dosage: 8 MG;X1; IV
     Route: 042
     Dates: start: 20110719, end: 20110719
  9. FISH OIL [Concomitant]
  10. LISINOPRIL [Concomitant]
  11. TRICOR [Concomitant]
  12. LIPITOR [Concomitant]
  13. ULORIC [Concomitant]
  14. ACTOS [Concomitant]
  15. SOLU-MEDROL [Concomitant]
  16. LORTAB [Concomitant]
  17. FLOMAX [Concomitant]

REACTIONS (1)
  - METHAEMOGLOBINAEMIA [None]
